FAERS Safety Report 5314772-5 (Version None)
Quarter: 2007Q2

REPORT INFORMATION
  Report Type: 
  Country: None (occurrence: None)
  Receive Date: 20070502
  Receipt Date: 20070426
  Transmission Date: 20071010
  Serious: Yes (Death)
  Sender: FDA-Public Use
  Company Number: 2007UW06818

PATIENT
  Age: 22 Year
  Sex: Male

DRUGS (6)
  1. SEROQUEL [Suspect]
     Indication: SCHIZOPHRENIA
     Route: 048
     Dates: start: 20031201
  2. CITALOPRO [Concomitant]
     Indication: DEPRESSION
     Route: 048
     Dates: start: 20011001
  3. CALCITRIOL [Concomitant]
     Indication: HYPOCALCAEMIA
     Route: 048
  4. ALLOPURINOL [Concomitant]
     Indication: GOUT
     Route: 048
     Dates: start: 20000101
  5. ASPIRIN [Concomitant]
     Route: 048
  6. CALCIUM CARBONATE [Concomitant]
     Indication: HYPOCALCAEMIA
     Route: 048

REACTIONS (1)
  - CARDIOPULMONARY FAILURE [None]
